FAERS Safety Report 25923878 (Version 1)
Quarter: 2025Q4

REPORT INFORMATION
  Report Type: Spontaneous
  Country: US (occurrence: US)
  Receive Date: 20251015
  Receipt Date: 20251015
  Transmission Date: 20260117
  Serious: No
  Sender: SHIELD THERAPEUTICS
  Company Number: US-SHIELD THERAPEUTICS-US-STX-24-00272

PATIENT
  Age: 64 Year
  Sex: Male

DRUGS (1)
  1. ACCRUFER [Suspect]
     Active Substance: FERRIC MALTOL
     Indication: Iron deficiency
     Dosage: 30 MILLIGRAM, BID
     Route: 048
     Dates: start: 20240806, end: 20240806

REACTIONS (2)
  - Malaise [Recovered/Resolved]
  - Constipation [Recovered/Resolved]
